FAERS Safety Report 9753821 (Version 1)
Quarter: 2013Q4

REPORT INFORMATION
  Report Type: Spontaneous
  Country: US (occurrence: US)
  Receive Date: 20131213
  Receipt Date: 20131213
  Transmission Date: 20140711
  Serious: No
  Sender: FDA-Public Use
  Company Number: US-GILEAD-2010-0027424

PATIENT
  Sex: Male
  Weight: 74.39 kg

DRUGS (12)
  1. LETAIRIS [Suspect]
     Indication: PULMONARY ARTERIAL HYPERTENSION
     Route: 048
     Dates: start: 20090123
  2. ATENOLOL [Concomitant]
  3. CARDIZEM CD [Concomitant]
  4. LIPITOR [Concomitant]
  5. COUMADIN [Concomitant]
  6. PLAVIX [Concomitant]
  7. ARTHROTEC [Concomitant]
  8. SYNTHROID [Concomitant]
  9. EFFEXOR [Concomitant]
  10. PLAQUENIL [Concomitant]
  11. ROBINUL [Concomitant]
  12. NEXIUM [Concomitant]

REACTIONS (1)
  - Red blood cell count decreased [Unknown]
